FAERS Safety Report 13426691 (Version 1)
Quarter: 2017Q2

REPORT INFORMATION
  Report Type: Spontaneous
  Country: US (occurrence: US)
  Receive Date: 20170411
  Receipt Date: 20170411
  Transmission Date: 20170830
  Serious: Yes (Disabling)
  Sender: FDA-Public Use
  Company Number: None

PATIENT
  Age: 82 Year
  Sex: Female
  Weight: 61.29 kg

DRUGS (8)
  1. VITAMIN D3 [Concomitant]
     Active Substance: CHOLECALCIFEROL
  2. VITAMIN B12 [Concomitant]
     Active Substance: CYANOCOBALAMIN
  3. PRILOSEC [Concomitant]
     Active Substance: OMEPRAZOLE MAGNESIUM
  4. MV1 WITH BIOTIN + ANTIOXIDANTS [Concomitant]
  5. WALKER [Concomitant]
  6. LEVOFLOXACIN. [Suspect]
     Active Substance: LEVOFLOXACIN
     Indication: URINARY TRACT INFECTION
     Dosage: ONDE (1) TAB/DAY DAILY BY MOUTH
     Route: 048
     Dates: start: 20161012, end: 20161018
  7. LEVOFLOXACIN. [Suspect]
     Active Substance: LEVOFLOXACIN
     Indication: UPPER RESPIRATORY TRACT INFECTION
     Dosage: ONDE (1) TAB/DAY DAILY BY MOUTH
     Route: 048
     Dates: start: 20161012, end: 20161018
  8. METFORMIN [Concomitant]
     Active Substance: METFORMIN HYDROCHLORIDE

REACTIONS (19)
  - Gastrointestinal disorder [None]
  - Upper respiratory tract infection [None]
  - Tendon rupture [None]
  - Diarrhoea [None]
  - Pain in extremity [None]
  - Headache [None]
  - Immobile [None]
  - Urinary tract infection [None]
  - Pulmonary congestion [None]
  - Feeling abnormal [None]
  - Peripheral swelling [None]
  - Memory impairment [None]
  - Asthenia [None]
  - Tendonitis [None]
  - Back pain [None]
  - Toothache [None]
  - Joint swelling [None]
  - Oropharyngeal pain [None]
  - Crepitations [None]

NARRATIVE: CASE EVENT DATE: 20161013
